FAERS Safety Report 19818047 (Version 2)
Quarter: 2021Q4

REPORT INFORMATION
  Report Type: Other
  Country: None (occurrence: IN)
  Receive Date: 20210911
  Receipt Date: 20211030
  Transmission Date: 20220303
  Serious: Yes (Hospitalization, Other)
  Sender: FDA-Public Use
  Company Number: IN-HEALTHCARE PHARMACEUTICALS LTD.-2118276

PATIENT
  Age: 60 Year
  Sex: Female

DRUGS (2)
  1. ATENOLOL [Suspect]
     Active Substance: ATENOLOL
     Indication: Hypertension
     Route: 065
  2. AMLODIPINE [Suspect]
     Active Substance: AMLODIPINE BESYLATE
     Route: 065

REACTIONS (1)
  - BRASH syndrome [Recovered/Resolved]
